FAERS Safety Report 13701651 (Version 6)
Quarter: 2018Q4

REPORT INFORMATION
  Report Type: Spontaneous
  Country: FR (occurrence: FR)
  Receive Date: 20170629
  Receipt Date: 20181121
  Transmission Date: 20190204
  Serious: Yes (Death, Life-Threatening, Other)
  Sender: FDA-Public Use
  Company Number: FR-PFIZER INC-2017215099

PATIENT
  Age: 4 Day
  Sex: Female

DRUGS (3)
  1. GENTAMICIN. [Suspect]
     Active Substance: GENTAMICIN
     Indication: BACILLUS INFECTION
     Dosage: UNK
     Route: 042
  2. VANCOMYCIN HYDROCHLORIDE. [Suspect]
     Active Substance: VANCOMYCIN HYDROCHLORIDE
     Indication: BACILLUS INFECTION
     Dosage: UNK
     Route: 042
  3. CEFOTAXIME [Suspect]
     Active Substance: CEFOTAXIME SODIUM
     Indication: BACILLUS INFECTION
     Dosage: UNK
     Route: 042

REACTIONS (1)
  - Drug ineffective [Fatal]
